FAERS Safety Report 4816759-5 (Version None)
Quarter: 2005Q4

REPORT INFORMATION
  Report Type: 
  Country: None (occurrence: None)
  Receive Date: 20051101
  Receipt Date: 20050503
  Transmission Date: 20060501
  Serious: No
  Sender: FDA-Public Use
  Company Number: US-GLAXOSMITHKLINE-A0557063A

PATIENT
  Age: 6 Year
  Sex: Female

DRUGS (1)
  1. AMOXIL [Suspect]
     Indication: SINUSITIS
     Dosage: 2TSP TWICE PER DAY
     Route: 048
     Dates: start: 20050429

REACTIONS (3)
  - COELIAC DISEASE [None]
  - CONDITION AGGRAVATED [None]
  - GASTRIC DISORDER [None]
